FAERS Safety Report 5685258-3 (Version None)
Quarter: 2008Q1

REPORT INFORMATION
  Report Type: 
  Country: None (occurrence: None)
  Receive Date: 20080328
  Receipt Date: 20080314
  Transmission Date: 20080703
  Serious: Yes (Disabling)
  Sender: FDA-Public Use
  Company Number: NZ-AMGEN-US252115

PATIENT
  Sex: Female
  Weight: 36 kg

DRUGS (4)
  1. ENBREL [Suspect]
     Indication: JUVENILE ARTHRITIS
     Route: 058
     Dates: start: 20040212
  2. IBUPROFEN [Concomitant]
     Indication: JUVENILE ARTHRITIS
     Dosage: UPTO 600 MG/DAY AS REQUIRED
     Route: 048
  3. OMEPRAZOLE [Concomitant]
     Dosage: 20 MG AS REQUIRED
     Route: 048
  4. METHOTREXATE [Concomitant]
     Indication: JUVENILE ARTHRITIS
     Route: 058
     Dates: start: 20050714

REACTIONS (2)
  - CONDITION AGGRAVATED [None]
  - UVEITIS [None]
